FAERS Safety Report 7783119-7 (Version None)
Quarter: 2011Q3

REPORT INFORMATION
  Report Type: 
  Country: None (occurrence: None)
  Receive Date: 20110926
  Receipt Date: 20110915
  Transmission Date: 20111222
  Serious: Yes (Hospitalization)
  Sender: FDA-Public Use
  Company Number: 2011SP042747

PATIENT
  Age: 63 Year
  Sex: Male

DRUGS (1)
  1. DEXAMETHASONE [Suspect]
     Indication: PANCREATIC CARCINOMA
     Dosage: 4 MG;BID;PO
     Route: 048
     Dates: start: 20110824, end: 20110831

REACTIONS (6)
  - ABDOMINAL INFECTION [None]
  - ASCITES [None]
  - TACHYCARDIA [None]
  - ESCHERICHIA SEPSIS [None]
  - METASTASES TO LIVER [None]
  - PULMONARY EMBOLISM [None]
